FAERS Safety Report 9456008 (Version 2)
Quarter: 2013Q3

REPORT INFORMATION
  Report Type: Spontaneous
  Country: JP (occurrence: JP)
  Receive Date: 20130813
  Receipt Date: 20130823
  Transmission Date: 20140515
  Serious: Yes (Other)
  Sender: FDA-Public Use
  Company Number: JP-PFIZER INC-2013233311

PATIENT
  Age: 46 Year
  Sex: Male
  Weight: 81.5 kg

DRUGS (6)
  1. HALOPERIDOL [Suspect]
     Indication: SCHIZOPHRENIA
     Dosage: 12 MG, 1X/DAY
     Route: 048
  2. CHLORPROMAZINE [Concomitant]
     Dosage: 100 MG, UNK
  3. LEVOMEPROMAZINE [Concomitant]
     Dosage: 90 MG, UNK
  4. BIPERIDEN HYDROCHLORIDE [Concomitant]
     Dosage: 3 MG, UNK
  5. CHLORPROMAZINE HYDROCHLORIDE/PHENOBARBITAL/PROMETHAZINE [Concomitant]
  6. NITRAZEPAM [Concomitant]
     Dosage: 10 MG, UNK

REACTIONS (1)
  - Inappropriate antidiuretic hormone secretion [Recovering/Resolving]
